FAERS Safety Report 7055185-8 (Version None)
Quarter: 2010Q4

REPORT INFORMATION
  Report Type: 
  Country: None (occurrence: None)
  Receive Date: 20101021
  Receipt Date: 20101012
  Transmission Date: 20110411
  Serious: Yes (Hospitalization)
  Sender: FDA-Public Use
  Company Number: FR-BAXTER-2010BH025689

PATIENT
  Age: 76 Year
  Sex: Male

DRUGS (8)
  1. GAMMAGARD S/D [Suspect]
     Indication: MULTIFOCAL MOTOR NEUROPATHY
     Route: 042
     Dates: start: 20101004, end: 20101006
  2. GAMMAGARD S/D [Suspect]
     Indication: OFF LABEL USE
     Route: 042
     Dates: start: 20101004, end: 20101006
  3. GAMMAGARD S/D [Suspect]
     Route: 065
  4. GAMMAGARD S/D [Suspect]
     Route: 065
  5. CO-RENITEC [Concomitant]
  6. LASIX [Concomitant]
  7. MANTADIX [Concomitant]
  8. TANAKAN [Concomitant]

REACTIONS (6)
  - DYSPNOEA [None]
  - GENERALISED ERYTHEMA [None]
  - HYPERTENSION [None]
  - HYPERTHERMIA [None]
  - MALAISE [None]
  - PYREXIA [None]
